FAERS Safety Report 9325655 (Version 3)
Quarter: 2013Q2

REPORT INFORMATION
  Report Type: Spontaneous
  Country: IT (occurrence: IT)
  Receive Date: 20130604
  Receipt Date: 20130613
  Transmission Date: 20140414
  Serious: Yes (Life-Threatening, Other)
  Sender: FDA-Public Use
  Company Number: IT-ELI_LILLY_AND_COMPANY-IT201305007536

PATIENT
  Age: 38 Year
  Sex: Male
  Weight: 65 kg

DRUGS (8)
  1. ZYPADHERA [Suspect]
     Indication: MANIA
     Dosage: 300 MG, UNKNOWN
     Route: 030
     Dates: start: 20130523, end: 20130523
  2. ZYPREXA [Concomitant]
     Dosage: 15 MG, UNKNOWN
     Dates: start: 20130522
  3. LITHIUM [Concomitant]
     Dosage: 1050 MG, UNKNOWN
  4. LITHIUM [Concomitant]
     Dosage: 950 MG, UNKNOWN
     Route: 048
  5. VALPROATE SODIUM [Concomitant]
     Dosage: 1000 MG, UNKNOWN
     Route: 048
  6. HALOPERIDOL [Concomitant]
     Dosage: 7 MG, UNKNOWN
  7. HALOPERIDOL [Concomitant]
     Dosage: 7.5 MG, UNK
     Route: 048
  8. DIAZEPAM [Concomitant]
     Dosage: 30 GTT, UNKNOWN
     Route: 048

REACTIONS (14)
  - Hypertensive crisis [Recovered/Resolved]
  - Hallucination, visual [Recovered/Resolved]
  - Myoclonus [Recovered/Resolved]
  - Psychomotor hyperactivity [Recovered/Resolved]
  - Confusional state [Recovered/Resolved]
  - Delirium [Recovered/Resolved]
  - Pyrexia [Recovered/Resolved]
  - Stereotypy [Recovered/Resolved]
  - Akathisia [Recovered/Resolved]
  - Sedation [Recovered/Resolved]
  - Aggression [Recovered/Resolved]
  - Somnolence [Recovered/Resolved]
  - Dysarthria [Recovered/Resolved]
  - Off label use [Unknown]
